FAERS Safety Report 9699786 (Version 2)
Quarter: 2014Q1

REPORT INFORMATION
  Report Type: Spontaneous
  Country: GB (occurrence: GB)
  Receive Date: 20131120
  Receipt Date: 20140108
  Transmission Date: 20141002
  Serious: Yes (Hospitalization)
  Sender: FDA-Public Use
  Company Number: GB-TEVA-444354ISR

PATIENT
  Age: 71 Year
  Sex: Female

DRUGS (7)
  1. CITALOPRAM [Suspect]
     Indication: DEPRESSION
     Dosage: 20 MILLIGRAM DAILY;
     Route: 048
     Dates: start: 20131004, end: 20131030
  2. OMEPRAZOLE [Suspect]
     Dosage: 20 MILLIGRAM DAILY; RECENTLY STARTED, DATE UNKNOWN
     Route: 048
  3. ENALAPRIL [Suspect]
  4. BENDROFLUMETHIAZIDE [Suspect]
  5. DOMPERIDONE [Concomitant]
     Indication: ABDOMINAL DISTENSION
     Dosage: 30 MILLIGRAM DAILY; WHEN NECESSARY.?RECENTLY STARTED WITH OMEPRAZOLE FOR BLOATING.
     Route: 048
  6. LEVOTHYROXINE [Concomitant]
     Dosage: 100 MICROGRAM DAILY; LONGSTANDING TREATMENT
     Route: 048
  7. ORAMORPH [Concomitant]
     Route: 048

REACTIONS (4)
  - Hyponatraemia [Recovering/Resolving]
  - Diarrhoea [Unknown]
  - Hallucination [Unknown]
  - Hypokalaemia [Unknown]
